FAERS Safety Report 21441279 (Version 1)
Quarter: 2022Q4

REPORT INFORMATION
  Report Type: Spontaneous
  Country: US (occurrence: None)
  Receive Date: 20221010
  Receipt Date: 20221010
  Transmission Date: 20230113
  Serious: Yes (Other)
  Sender: FDA-Public Use
  Company Number: None

PATIENT
  Age: 61 Year
  Sex: Male
  Weight: 84 kg

DRUGS (20)
  1. METOPROLOL TARTRATE [Suspect]
     Active Substance: METOPROLOL TARTRATE
     Indication: Supraventricular tachycardia
     Dosage: FREQUENCY : TWICE A DAY;?
     Route: 048
     Dates: start: 20220902, end: 20220908
  2. acetaminophen 650 mg q8h [Concomitant]
  3. albuterol 2.5 mg nebulizer [Concomitant]
  4. azathioprine 100 mg daily [Concomitant]
  5. citalopram 10 mg daily [Concomitant]
  6. cyclosporine 250 mg q12h [Concomitant]
  7. furosemide 40 mg daily [Concomitant]
  8. heparin 5000 units subq q12h [Concomitant]
  9. insulin aspart with meals [Concomitant]
  10. lansoprazole 30 mg DR capsule [Concomitant]
  11. melatonin 6 mg daily [Concomitant]
  12. nystatin 100000 unit/mL 5mL swish and swallow daily [Concomitant]
  13. prednisone 10 mg daily [Concomitant]
  14. psyllium packet 1 gram daily [Concomitant]
  15. quetiapine 25 mg daily [Concomitant]
  16. rosuvastatin 10 mg daily [Concomitant]
  17. sirolimus 2 mg daily [Concomitant]
  18. Bactrim SS one tablet daily [Concomitant]
  19. ursodiol 300 mg capsule TID [Concomitant]
  20. valganciclovir 900 mg tablet daliy [Concomitant]

REACTIONS (4)
  - Orthostatic hypotension [None]
  - Dizziness [None]
  - Limb discomfort [None]
  - Heart rate increased [None]

NARRATIVE: CASE EVENT DATE: 20220905
